FAERS Safety Report 17153328 (Version 2)
Quarter: 2020Q1

REPORT INFORMATION
  Report Type: Spontaneous
  Country: DK (occurrence: DK)
  Receive Date: 20191213
  Receipt Date: 20200218
  Transmission Date: 20200409
  Serious: Yes (Other)
  Sender: FDA-Public Use
  Company Number: DK-GLAXOSMITHKLINE-DK2019206193

PATIENT
  Age: 43 Year
  Sex: Male

DRUGS (4)
  1. TERBINAFINE HYDROCHLORIDE. [Suspect]
     Active Substance: TERBINAFINE HYDROCHLORIDE
     Indication: TRICHOPHYTOSIS
     Dosage: UNK
     Route: 061
     Dates: start: 2010
  2. TERBINAFINE. [Suspect]
     Active Substance: TERBINAFINE
     Indication: TRICHOPHYTOSIS
     Dosage: UNK (SEVERAL TREATMENT COURSES (2-4 WEEKS) IN A TWO YEAR PERIOD)
     Route: 061
     Dates: start: 2010
  3. TERBINAFINE. [Suspect]
     Active Substance: TERBINAFINE
     Dosage: UNK
     Route: 062
     Dates: start: 2014
  4. TERBINAFINE. [Suspect]
     Active Substance: TERBINAFINE
     Indication: TRICHOPHYTOSIS
     Dosage: UNK
     Route: 048
     Dates: start: 2014

REACTIONS (4)
  - Pathogen resistance [Unknown]
  - Drug ineffective [Unknown]
  - Treatment failure [Unknown]
  - Drug resistance [Unknown]
